FAERS Safety Report 15703859 (Version 1)
Quarter: 2018Q4

REPORT INFORMATION
  Report Type: Spontaneous
  Country: PT (occurrence: PT)
  Receive Date: 20181210
  Receipt Date: 20181210
  Transmission Date: 20190205
  Serious: Yes (Other)
  Sender: FDA-Public Use
  Company Number: PT-GLAXOSMITHKLINE-PT2018220786

PATIENT
  Age: 72 Year
  Sex: Female

DRUGS (1)
  1. DICLOFENAC [Suspect]
     Active Substance: DICLOFENAC
     Indication: RENAL COLIC
     Dosage: UNK
     Route: 030

REACTIONS (2)
  - Angioedema [Recovered/Resolved]
  - Respiratory distress [Recovered/Resolved]
